FAERS Safety Report 11950580 (Version 1)
Quarter: 2016Q1

REPORT INFORMATION
  Report Type: Spontaneous
  Country: US (occurrence: None)
  Receive Date: 20160122
  Receipt Date: 20160122
  Transmission Date: 20160526
  Serious: Yes (Hospitalization, Other)
  Sender: FDA-Public Use
  Company Number: None

PATIENT
  Age: 53 Year
  Sex: Male

DRUGS (3)
  1. OXYCODONE [Concomitant]
     Active Substance: OXYCODONE
  2. OXYCONTIN [Concomitant]
     Active Substance: OXYCODONE HYDROCHLORIDE
  3. ENOXAPARIN [Suspect]
     Active Substance: ENOXAPARIN
     Route: 058
     Dates: start: 20150618

REACTIONS (2)
  - Cerebral haemorrhage [None]
  - Meningitis [None]
